FAERS Safety Report 5892390-8 (Version None)
Quarter: 2008Q3

REPORT INFORMATION
  Report Type: 
  Country: None (occurrence: None)
  Receive Date: 20080919
  Receipt Date: 20080919
  Transmission Date: 20090109
  Serious: Yes (Hospitalization)
  Sender: FDA-Public Use
  Company Number: None

PATIENT
  Age: 15 Year
  Sex: Male
  Weight: 46.6 kg

DRUGS (3)
  1. VANCOMYCIN HYDROCHLORIDE [Suspect]
     Indication: OSTEOMYELITIS
     Dosage: 1250 MG EVERY 6 HOURS IV
     Route: 042
     Dates: start: 20080908, end: 20080918
  2. CETRIAXONE [Concomitant]
  3. VICODIN [Concomitant]

REACTIONS (2)
  - FEELING HOT [None]
  - RASH ERYTHEMATOUS [None]
